FAERS Safety Report 6131425-4 (Version None)
Quarter: 2009Q1

REPORT INFORMATION
  Report Type: 
  Country: None (occurrence: None)
  Receive Date: 20090325
  Receipt Date: 20080612
  Transmission Date: 20090719
  Serious: Yes (Hospitalization)
  Sender: FDA-Public Use
  Company Number: US-BRISTOL-MYERS SQUIBB COMPANY-14226427

PATIENT
  Sex: Female

DRUGS (1)
  1. ERBITUX [Suspect]
     Dates: start: 20080611, end: 20080611

REACTIONS (1)
  - CHILLS [None]
